FAERS Safety Report 4373439-0 (Version None)
Quarter: 2004Q2

REPORT INFORMATION
  Report Type: 
  Country: None (occurrence: None)
  Receive Date: 20040608
  Receipt Date: 20040503
  Transmission Date: 20050107
  Serious: Yes (Hospitalization)
  Sender: FDA-Public Use
  Company Number: DE-MERCK-0405DEU00043

PATIENT
  Age: 54 Year
  Sex: Male

DRUGS (4)
  1. DICLOFENAC [Concomitant]
     Route: 065
  2. IBUPROFEN [Concomitant]
     Route: 065
     Dates: start: 20040402, end: 20040414
  3. VIOXX [Suspect]
     Indication: POST PROCEDURAL PAIN
     Route: 048
     Dates: start: 20040415, end: 20040503
  4. VIOXX [Suspect]
     Route: 048
     Dates: start: 20040415, end: 20040503

REACTIONS (8)
  - CHEST PAIN [None]
  - GLOSSODYNIA [None]
  - HERPES VIRUS INFECTION [None]
  - INSOMNIA [None]
  - OEDEMA PERIPHERAL [None]
  - OROPHARYNGEAL SWELLING [None]
  - PARAESTHESIA ORAL [None]
  - PRURITUS [None]
